FAERS Safety Report 4601850-9 (Version None)
Quarter: 2005Q1

REPORT INFORMATION
  Report Type: 
  Country: None (occurrence: None)
  Receive Date: 20050131
  Receipt Date: 20041201
  Transmission Date: 20050727
  Serious: No
  Sender: FDA-Public Use
  Company Number: 200419355US

PATIENT
  Age: 62 Year
  Sex: Female

DRUGS (4)
  1. KETEK [Suspect]
     Indication: APHONIA
     Dosage: QD PO
     Route: 048
     Dates: start: 20041129, end: 20041130
  2. ADALAT [Concomitant]
  3. PROPRANOLOL [Concomitant]
  4. SYNTHROID [Concomitant]

REACTIONS (3)
  - ASTHENIA [None]
  - DYSPNOEA [None]
  - SENSATION OF HEAVINESS [None]
